FAERS Safety Report 20849694 (Version 1)
Quarter: 2022Q2

REPORT INFORMATION
  Report Type: Spontaneous
  Country: None (occurrence: CN)
  Receive Date: 20220518
  Receipt Date: 20220518
  Transmission Date: 20220720
  Serious: Yes (Hospitalization)
  Sender: FDA-Public Use
  Company Number: CN-Jiangsu Hengrui Medicine Co., Ltd.-2128883

PATIENT
  Age: 48 Year
  Sex: Male

DRUGS (5)
  1. GABAPENTIN [Suspect]
     Active Substance: GABAPENTIN
     Indication: Dystonia
     Route: 048
     Dates: start: 20180426
  2. EPERISONE HYDROCHLORIDE [Suspect]
     Active Substance: EPERISONE HYDROCHLORIDE
     Route: 048
     Dates: start: 20180426
  3. NIFEDIPINE [Suspect]
     Active Substance: NIFEDIPINE
     Route: 048
  4. CLONAZEPAM [Suspect]
     Active Substance: CLONAZEPAM
     Route: 048
  5. DIETARY SUPPLEMENT\OPHIOCORDYCEPS SINENSIS [Suspect]
     Active Substance: DIETARY SUPPLEMENT\OPHIOCORDYCEPS SINENSIS
     Route: 048
     Dates: start: 20180426

REACTIONS (5)
  - Cerebral haemorrhage [Recovering/Resolving]
  - Urinary tract infection [Not Recovered/Not Resolved]
  - Cerebral infarction [Unknown]
  - Somnolence [Unknown]
  - Product use in unapproved indication [Unknown]

NARRATIVE: CASE EVENT DATE: 20180426
